FAERS Safety Report 25859725 (Version 3)
Quarter: 2025Q4

REPORT INFORMATION
  Report Type: Spontaneous
  Country: EU (occurrence: EU)
  Receive Date: 20250929
  Receipt Date: 20251018
  Transmission Date: 20260117
  Serious: Yes (Hospitalization, Other)
  Sender: IPSEN BIOPHARMACEUTICALS, INC.
  Company Number: EU-IPSEN Group, Research and Development-2025-23911

PATIENT
  Age: 69 Year
  Sex: Male

DRUGS (9)
  1. LANREOTIDE ACETATE [Suspect]
     Active Substance: LANREOTIDE ACETATE
     Indication: Neuroendocrine tumour
     Dates: start: 20210407
  2. LANREOTIDE ACETATE [Suspect]
     Active Substance: LANREOTIDE ACETATE
     Dates: start: 2022
  3. LANREOTIDE ACETATE [Suspect]
     Active Substance: LANREOTIDE ACETATE
  4. RAMIPRIL [Concomitant]
     Active Substance: RAMIPRIL
     Indication: Hypotension
  5. METFORMIN [Concomitant]
     Active Substance: METFORMIN HYDROCHLORIDE
     Indication: Diabetes mellitus
  6. PANCRELIPASE [Concomitant]
     Active Substance: PANCRELIPASE
     Dosage: KREON 25000 PANCREATIC POWDER
  7. METOPROLOL [Concomitant]
     Active Substance: METOPROLOL
     Dosage: MORNING AND EVENING
  8. ATORVASTATIN [Concomitant]
     Active Substance: ATORVASTATIN
     Indication: Blood cholesterol
  9. ELIQUIS [Concomitant]
     Active Substance: APIXABAN
     Dosage: BLOOD THINNER, MORNING AND EVENING

REACTIONS (7)
  - Heart rate increased [Unknown]
  - Hospitalisation [Unknown]
  - Malignant neoplasm progression [Unknown]
  - Heart rate increased [Unknown]
  - Hypertension [Unknown]
  - Coronavirus infection [Unknown]
  - Off label use [Unknown]

NARRATIVE: CASE EVENT DATE: 20241001
